FAERS Safety Report 7652956-1 (Version None)
Quarter: 2011Q3

REPORT INFORMATION
  Report Type: 
  Country: None (occurrence: None)
  Receive Date: 20110803
  Receipt Date: 20110728
  Transmission Date: 20111222
  Serious: Yes (Death)
  Sender: FDA-Public Use
  Company Number: PT-ROCHE-697122

PATIENT
  Sex: Female

DRUGS (6)
  1. ENOXAPARIN [Concomitant]
     Dates: start: 20100308
  2. BEVACIZUMAB [Suspect]
     Dosage: LAST DOSE PRIOR TO SAE ON 01 APRIL 2010.
     Route: 042
     Dates: start: 20100202
  3. DOXORUBICIN HCL [Suspect]
     Dosage: FREQUENCY REPORTED AS DAY 1 FOR EVERY 4 WEEK. LAST DOSE PRIOR TO SAE ON 01 APRIL 2010.
     Route: 042
     Dates: start: 20100202
  4. TRAMADOL HCL [Concomitant]
     Dates: start: 20100321
  5. METOCLOPRAMIDA [Concomitant]
     Dates: start: 20100321
  6. METAMIZOL MAGNESIUM [Concomitant]
     Dates: start: 20100201

REACTIONS (1)
  - SHOCK [None]
